FAERS Safety Report 16573280 (Version 1)
Quarter: 2019Q3

REPORT INFORMATION
  Report Type: Spontaneous
  Country: US (occurrence: US)
  Receive Date: 20190715
  Receipt Date: 20190715
  Transmission Date: 20191004
  Serious: No
  Sender: FDA-Public Use
  Company Number: US-PFIZER INC-2019300371

PATIENT
  Sex: Male

DRUGS (1)
  1. NEURONTIN [Suspect]
     Active Substance: GABAPENTIN
     Dosage: 6 DF, UNK

REACTIONS (4)
  - Burning sensation [Unknown]
  - Drug ineffective [Unknown]
  - Insomnia [Unknown]
  - Pain [Unknown]
